FAERS Safety Report 10267746 (Version 2)
Quarter: 2014Q3

REPORT INFORMATION
  Report Type: Spontaneous
  Country: LB (occurrence: LB)
  Receive Date: 20140630
  Receipt Date: 20140715
  Transmission Date: 20150326
  Serious: Yes (Death, Hospitalization)
  Sender: FDA-Public Use
  Company Number: LB-SA-2014SA082542

PATIENT
  Age: 22 Year
  Sex: Female

DRUGS (1)
  1. LOVENOX [Suspect]
     Active Substance: ENOXAPARIN SODIUM
     Indication: PRODUCT USED FOR UNKNOWN INDICATION
     Route: 058
     Dates: start: 201406

REACTIONS (11)
  - Nausea [Fatal]
  - Wound secretion [Not Recovered/Not Resolved]
  - Peritoneal haemorrhage [Fatal]
  - Blood disorder [Not Recovered/Not Resolved]
  - Cardiac arrest [Fatal]
  - Hypotension [Fatal]
  - Renal impairment [Fatal]
  - Embolism [Fatal]
  - Altered state of consciousness [Fatal]
  - Coma [Fatal]
  - Respiratory arrest [Fatal]

NARRATIVE: CASE EVENT DATE: 201406
